FAERS Safety Report 17891128 (Version 1)
Quarter: 2020Q2

REPORT INFORMATION
  Report Type: Spontaneous
  Country: AT (occurrence: AT)
  Receive Date: 20200612
  Receipt Date: 20200612
  Transmission Date: 20200714
  Serious: Yes (Other)
  Sender: FDA-Public Use
  Company Number: AT-CELGENEUS-AUT-20200602117

PATIENT
  Sex: Female

DRUGS (6)
  1. POMALIDOMIDE [Suspect]
     Active Substance: POMALIDOMIDE
     Indication: OCULAR LYMPHOMA
     Dosage: 4 MILLIGRAM
     Route: 048
  2. RITUXIMAB. [Suspect]
     Active Substance: RITUXIMAB
     Indication: OCULAR LYMPHOMA
     Dosage: 1400 MILLIGRAM
     Route: 058
  3. CYTARABINE. [Suspect]
     Active Substance: CYTARABINE
     Indication: LYMPHOMA
     Dosage: BIWEEKLY ; CYCLICAL
     Route: 037
  4. POMALIDOMIDE [Suspect]
     Active Substance: POMALIDOMIDE
     Indication: OFF LABEL USE
  5. TEMOZOLOMIDE. [Suspect]
     Active Substance: TEMOZOLOMIDE
     Indication: OCULAR LYMPHOMA
     Dosage: (150 MG/M2)
     Route: 048
  6. DEXAMETHASONE. [Suspect]
     Active Substance: DEXAMETHASONE
     Indication: OCULAR LYMPHOMA
     Dosage: 20 MILLIGRAM
     Route: 048

REACTIONS (4)
  - Hypogammaglobulinaemia [Recovered/Resolved]
  - Neurotoxicity [Recovered/Resolved]
  - Pneumonia [Recovered/Resolved]
  - Adrenal insufficiency [Recovered/Resolved]
